FAERS Safety Report 18544597 (Version 3)
Quarter: 2022Q4

REPORT INFORMATION
  Report Type: Spontaneous
  Country: CZ (occurrence: CZ)
  Receive Date: 20201125
  Receipt Date: 20221022
  Transmission Date: 20230113
  Serious: Yes (Death, Other)
  Sender: FDA-Public Use
  Company Number: NVSC2020CZ314517

PATIENT
  Age: 19 Year
  Sex: Male

DRUGS (21)
  1. KYMRIAH [Suspect]
     Active Substance: TISAGENLECLEUCEL
     Indication: Acute lymphocytic leukaemia
     Dosage: 1.2 X 106 UP TO 6 X 108 CAR-T CELLS
     Route: 042
     Dates: start: 20201013
  2. DEXAMED [Concomitant]
     Indication: Product used for unknown indication
     Dosage: 10 MG
     Route: 042
     Dates: start: 20201016
  3. DEXAMED [Concomitant]
     Dosage: 10 MG
     Route: 042
     Dates: start: 20201027
  4. DEXAMED [Concomitant]
     Dosage: 8 MG
     Route: 042
     Dates: start: 20201029
  5. DEXAMED [Concomitant]
     Dosage: 8 MG
     Route: 042
     Dates: start: 20201102
  6. DEXAMED [Concomitant]
     Dosage: 10 MG
     Route: 042
     Dates: start: 20201103
  7. DEXAMED [Concomitant]
     Dosage: 10 MG
     Route: 042
     Dates: start: 20201106
  8. NOXAFIL [Concomitant]
     Active Substance: POSACONAZOLE
     Indication: Product used for unknown indication
     Dosage: UNK
     Route: 065
  9. KEPPRA [Concomitant]
     Active Substance: LEVETIRACETAM
     Indication: Product used for unknown indication
     Dosage: UNK
     Route: 065
  10. ALLOPURINOL [Concomitant]
     Active Substance: ALLOPURINOL
     Indication: Product used for unknown indication
     Dosage: UNK
     Route: 065
  11. ALPRAZOLAM [Concomitant]
     Active Substance: ALPRAZOLAM
     Indication: Product used for unknown indication
     Dosage: UNK
     Route: 065
  12. TRAZODONE HYDROCHLORIDE [Concomitant]
     Active Substance: TRAZODONE HYDROCHLORIDE
     Indication: Product used for unknown indication
     Dosage: UNK
     Route: 065
  13. IBUPROFEN [Concomitant]
     Active Substance: IBUPROFEN
     Indication: Product used for unknown indication
     Dosage: UNK
     Route: 065
  14. ACETAMINOPHEN [Concomitant]
     Active Substance: ACETAMINOPHEN
     Indication: Product used for unknown indication
     Dosage: UNK
     Route: 065
  15. FUROSEMIDE [Concomitant]
     Active Substance: FUROSEMIDE
     Indication: Product used for unknown indication
     Dosage: UNK
     Route: 065
  16. CEFEPIME [Concomitant]
     Active Substance: CEFEPIME HYDROCHLORIDE
     Indication: Product used for unknown indication
     Dosage: UNK
     Route: 065
  17. NUTRIFLEX OMEGA SPECIAL [Concomitant]
     Indication: Product used for unknown indication
     Dosage: UNK
     Route: 065
  18. BISEPTOL [Concomitant]
     Active Substance: SULFAMETHOXAZOLE\TRIMETHOPRIM
     Indication: Product used for unknown indication
     Dosage: UNK, QD (0-0-1)
     Route: 065
  19. ZOVIRAX [Concomitant]
     Active Substance: ACYCLOVIR
     Indication: Product used for unknown indication
     Dosage: UNK
     Route: 065
  20. BENZYDAMINE HYDROCHLORIDE [Concomitant]
     Active Substance: BENZYDAMINE HYDROCHLORIDE
     Indication: Product used for unknown indication
     Dosage: UNK
     Route: 065
  21. NUTRIDRINK PROTEIN [Concomitant]
     Indication: Product used for unknown indication
     Dosage: UNK
     Route: 065

REACTIONS (15)
  - Sepsis [Fatal]
  - Multiple organ dysfunction syndrome [Fatal]
  - Cytokine release syndrome [Fatal]
  - Pyrexia [Fatal]
  - Myalgia [Fatal]
  - Liver disorder [Fatal]
  - Immune effector cell-associated neurotoxicity syndrome [Fatal]
  - Somnolence [Fatal]
  - Vision blurred [Fatal]
  - Acute lymphocytic leukaemia [Fatal]
  - Malignant neoplasm progression [Fatal]
  - Minimal residual disease [Not Recovered/Not Resolved]
  - C-reactive protein increased [Unknown]
  - Interleukin level increased [Unknown]
  - Serum ferritin increased [Unknown]

NARRATIVE: CASE EVENT DATE: 20201016
